FAERS Safety Report 18748428 (Version 3)
Quarter: 2021Q1

REPORT INFORMATION
  Report Type: Spontaneous
  Country: CA (occurrence: CA)
  Receive Date: 20210115
  Receipt Date: 20210315
  Transmission Date: 20210419
  Serious: Yes (Other)
  Sender: FDA-Public Use
  Company Number: CA-PFIZER INC-2020505833

PATIENT
  Age: 60 Year
  Sex: Female

DRUGS (24)
  1. XELJANZ [Suspect]
     Active Substance: TOFACITINIB CITRATE
     Dosage: 5 MG, 2X/DAY
     Route: 048
     Dates: start: 202102, end: 2021
  2. APTIOM [Concomitant]
     Active Substance: ESLICARBAZEPINE ACETATE
     Dosage: 400 MG, DAILY
     Route: 065
  3. CALCIUM [Concomitant]
     Active Substance: CALCIUM
     Dosage: UNK
  4. METHOTREXATE. [Concomitant]
     Active Substance: METHOTREXATE
     Indication: PSORIATIC ARTHROPATHY
     Dosage: 20 MG, WEEKLY
  5. OMEGA 3 [FISH OIL] [Concomitant]
     Active Substance: FISH OIL
     Dosage: UNK
  6. CELEBREX [Concomitant]
     Active Substance: CELECOXIB
     Dosage: 200 MG, DAILY
     Route: 065
  7. PREGABALIN. [Concomitant]
     Active Substance: PREGABALIN
     Dosage: 50 MG, 1X/DAY QPM
  8. SUBOXONE [Concomitant]
     Active Substance: BUPRENORPHINE HYDROCHLORIDE\NALOXONE HYDROCHLORIDE
     Dosage: 8 MG, 3X/DAY
  9. ZOLOFT [Concomitant]
     Active Substance: SERTRALINE HYDROCHLORIDE
     Dosage: 150 MG, DAILY
     Route: 065
  10. DEXILANT [Concomitant]
     Active Substance: DEXLANSOPRAZOLE
     Dosage: 60 MG, 1X/DAY QHS
     Route: 065
  11. IMITREX [Concomitant]
     Active Substance: SUMATRIPTAN SUCCINATE
     Dosage: 100 MG, AS NEEDED
     Route: 065
  12. TRAZODONE [Concomitant]
     Active Substance: TRAZODONE HYDROCHLORIDE
     Dosage: 50?100MG QHS
     Route: 065
  13. VITAMIN D [COLECALCIFEROL] [Concomitant]
     Active Substance: CHOLECALCIFEROL
     Dosage: UNK
  14. XELJANZ [Suspect]
     Active Substance: TOFACITINIB CITRATE
     Indication: PSORIATIC ARTHROPATHY
     Dosage: 5 MG, 2X/DAY
     Route: 048
     Dates: start: 20201214, end: 202012
  15. DOCUSATE [Concomitant]
     Active Substance: DOCUSATE
     Dosage: 200 MG, DAILY
     Route: 065
  16. MAGNESIUM [Concomitant]
     Active Substance: MAGNESIUM
     Dosage: UNK
  17. NITROFURANTOIN. [Concomitant]
     Active Substance: NITROFURANTOIN
     Dosage: 50 MG, 1X/DAY QHS
     Route: 065
  18. XELJANZ [Suspect]
     Active Substance: TOFACITINIB CITRATE
     Dosage: 5 MG, 2X/DAY
     Route: 048
     Dates: start: 20210118, end: 20210204
  19. ESTROGEL [Concomitant]
     Active Substance: ESTRADIOL
     Dosage: 0.6 MG, 1X/DAY (2 PUMPS QAM)
  20. FOLIC ACID. [Concomitant]
     Active Substance: FOLIC ACID
     Dosage: 1000 UG, DAILY (EXCEPT MTX DOSE DAY)
     Route: 065
  21. PREGABALIN. [Concomitant]
     Active Substance: PREGABALIN
     Dosage: 25 MG, 1X/DAY QAM
  22. VITAMIN B12 [Concomitant]
     Active Substance: CYANOCOBALAMIN
     Dosage: UNK
  23. BACLOFEN. [Concomitant]
     Active Substance: BACLOFEN
     Dosage: 10 MG, AS NEEDED (10MG 1?2 TABS PRN)
     Route: 065
  24. PROGESTERONE. [Concomitant]
     Active Substance: PROGESTERONE
     Dosage: 100 MG, 1X/DAY (QPM)
     Route: 065

REACTIONS (16)
  - Dysuria [Unknown]
  - Decreased appetite [Unknown]
  - Dyspepsia [Unknown]
  - Diarrhoea [Unknown]
  - Sneezing [Unknown]
  - Somnolence [Unknown]
  - Hypersomnia [Unknown]
  - Joint injury [Unknown]
  - Cough [Unknown]
  - Nausea [Unknown]
  - Headache [Unknown]
  - Peripheral swelling [Unknown]
  - Cataract [Unknown]
  - Pain [Recovering/Resolving]
  - Swelling face [Unknown]
  - Rhinorrhoea [Unknown]

NARRATIVE: CASE EVENT DATE: 202012
